FAERS Safety Report 22947198 (Version 2)
Quarter: 2023Q4

REPORT INFORMATION
  Report Type: Spontaneous
  Country: US (occurrence: US)
  Receive Date: 20230915
  Receipt Date: 20231025
  Transmission Date: 20240110
  Serious: No
  Sender: FDA-Public Use
  Company Number: US-JNJFOC-20230931999

PATIENT
  Age: 81 Year
  Sex: Male
  Weight: 72.64 kg

DRUGS (1)
  1. ERLEADA [Suspect]
     Active Substance: APALUTAMIDE
     Indication: Product used for unknown indication
     Dosage: 4- 60 MG TABLETS QD BY MOUTH
     Route: 048
     Dates: start: 202304, end: 2023

REACTIONS (3)
  - Rash [Recovered/Resolved]
  - Wound [Unknown]
  - Blister [Unknown]

NARRATIVE: CASE EVENT DATE: 20230101
